FAERS Safety Report 21967488 (Version 2)
Quarter: 2023Q2

REPORT INFORMATION
  Report Type: Spontaneous
  Country: GB (occurrence: GB)
  Receive Date: 20230208
  Receipt Date: 20230601
  Transmission Date: 20230722
  Serious: Yes (Other)
  Sender: FDA-Public Use
  Company Number: GB-002147023-NVSC2022GB265412

PATIENT
  Age: 7 Decade

DRUGS (1)
  1. FINGOLIMOD [Suspect]
     Active Substance: FINGOLIMOD
     Indication: Product used for unknown indication
     Dosage: UNK, OCCLUSIVE ROUTE
     Route: 065

REACTIONS (2)
  - Hypokalaemia [Unknown]
  - Macular oedema [Recovered/Resolved]
